FAERS Safety Report 16101660 (Version 1)
Quarter: 2019Q1

REPORT INFORMATION
  Report Type: Spontaneous
  Country: DE (occurrence: DE)
  Receive Date: 20190321
  Receipt Date: 20190321
  Transmission Date: 20190418
  Serious: Yes (Other)
  Sender: FDA-Public Use
  Company Number: DE-009507513-1903DEU005954

PATIENT
  Age: 63 Year
  Sex: Female

DRUGS (3)
  1. TEMOZOLOMIDE. [Suspect]
     Active Substance: TEMOZOLOMIDE
     Dosage: 75 MILLIGRAM/SQ. METER
  2. TEMOZOLOMIDE. [Suspect]
     Active Substance: TEMOZOLOMIDE
     Dosage: 150-200 MILLIGRAM/SQ. METER; 4 CYCLES
  3. HYPERICIN [Suspect]
     Active Substance: HYPERICIN
     Indication: DEPRESSION
     Dosage: 900 MG PER DAY

REACTIONS (2)
  - Radiation interaction [Unknown]
  - Optic neuropathy [Unknown]
